FAERS Safety Report 16365985 (Version 2)
Quarter: 2019Q3

REPORT INFORMATION
  Report Type: Spontaneous
  Country: DE (occurrence: DE)
  Receive Date: 20190529
  Receipt Date: 20190710
  Transmission Date: 20191004
  Serious: Yes (Death, Hospitalization, Other)
  Sender: FDA-Public Use
  Company Number: DE-VELOXIS PHARMACEUTICALS, INC.-2019VELDE1534

PATIENT
  Age: 68 Year
  Sex: Male

DRUGS (7)
  1. CEFTRIAXONE. [Concomitant]
     Active Substance: CEFTRIAXONE
     Indication: PRODUCT USED FOR UNKNOWN INDICATION
     Dosage: 2 G, QD
     Route: 065
  2. PIPERACILLIN/TAZOBACTAM [Concomitant]
     Active Substance: PIPERACILLIN SODIUM\TAZOBACTAM SODIUM
     Indication: PRODUCT USED FOR UNKNOWN INDICATION
     Dosage: 4 G, QD
     Route: 065
  3. ENVARSUS XR [Suspect]
     Active Substance: TACROLIMUS
     Indication: IMMUNOSUPPRESSANT DRUG THERAPY
     Route: 065
  4. CLARITHROMYCIN. [Concomitant]
     Active Substance: CLARITHROMYCIN
     Indication: PRODUCT USED FOR UNKNOWN INDICATION
     Dosage: 500 MG, BID
     Route: 065
  5. PIPERACILLIN/TAZOBACTAM [Concomitant]
     Active Substance: PIPERACILLIN SODIUM\TAZOBACTAM SODIUM
     Dosage: 5 G, QD
     Route: 065
  6. FLUCLOXACILLIN [Concomitant]
     Active Substance: FLUCLOXACILLIN
     Indication: STAPHYLOCOCCAL SEPSIS
     Dosage: 2 G, TID
     Route: 065
  7. LINEZOLID. [Concomitant]
     Active Substance: LINEZOLID
     Indication: PRODUCT USED FOR UNKNOWN INDICATION
     Route: 065

REACTIONS (20)
  - Staphylococcal bacteraemia [Fatal]
  - Thrombocytopenia [Unknown]
  - Acute myeloid leukaemia [Unknown]
  - Ascites [Unknown]
  - Intentional product use issue [Unknown]
  - Oedema peripheral [Unknown]
  - Renal failure [Unknown]
  - Encephalopathy [Unknown]
  - Respiratory failure [Unknown]
  - Red blood cell schistocytes present [Unknown]
  - Cytomegalovirus infection [Unknown]
  - Chronic graft versus host disease [Unknown]
  - Enterococcal infection [Unknown]
  - Necrotising oesophagitis [Unknown]
  - Septic shock [Unknown]
  - Gastric ulcer [Unknown]
  - Pleural effusion [Unknown]
  - Chloroma [Unknown]
  - Acute myeloid leukaemia [Fatal]
  - Cardiac failure [Unknown]
